FAERS Safety Report 7438597-X (Version None)
Quarter: 2011Q2

REPORT INFORMATION
  Report Type: 
  Country: None (occurrence: None)
  Receive Date: 20110426
  Receipt Date: 20110419
  Transmission Date: 20111010
  Serious: Yes (Other)
  Sender: FDA-Public Use
  Company Number: CA-PFIZER INC-2010070054

PATIENT
  Age: 75 Year
  Sex: Male
  Weight: 79 kg

DRUGS (4)
  1. LIPITOR [Suspect]
     Indication: HYPERCHOLESTEROLAEMIA
     Dosage: 5 MG, 1X/DAY
     Route: 048
     Dates: start: 19990101
  2. ADALAT [Concomitant]
     Dosage: 5 MG, 1X/DAY
  3. TIAZAC [Concomitant]
     Dosage: 24 MG, 1X/DAY
  4. PLAVIX [Concomitant]
     Dosage: UNK, DAILY

REACTIONS (3)
  - BRONCHOSPASM [None]
  - BURNING SENSATION MUCOSAL [None]
  - EAR PAIN [None]
